FAERS Safety Report 7455849-8 (Version None)
Quarter: 2011Q2

REPORT INFORMATION
  Report Type: 
  Country: None (occurrence: None)
  Receive Date: 20110503
  Receipt Date: 20110427
  Transmission Date: 20111010
  Serious: Yes (Death)
  Sender: FDA-Public Use
  Company Number: A0817853A

PATIENT
  Age: 76 Year
  Sex: Female
  Weight: 95 kg

DRUGS (15)
  1. AVANDIA [Suspect]
     Route: 048
     Dates: end: 20060823
  2. RELAFEN [Concomitant]
  3. VASOTEC [Concomitant]
  4. GLYBURIDE [Concomitant]
  5. LESCOL [Concomitant]
  6. MAXZIDE [Concomitant]
  7. LIPITOR [Concomitant]
  8. NABUMETONE [Concomitant]
  9. TRIAMTERENE AND HYDROCHLOROTHIAZIDE [Concomitant]
  10. ASPIRIN [Concomitant]
  11. PLETAL [Concomitant]
  12. DYAZIDE [Concomitant]
  13. COREG [Concomitant]
  14. NORVASC [Concomitant]
  15. ENALAPRIL [Concomitant]

REACTIONS (3)
  - MYOCARDIAL INFARCTION [None]
  - CARDIAC FAILURE CONGESTIVE [None]
  - CARDIAC ARREST [None]
